FAERS Safety Report 8903389 (Version 1)
Quarter: 2012Q4

REPORT INFORMATION
  Report Type: 
  Country: FR (occurrence: FR)
  Receive Date: 20121113
  Receipt Date: 20121113
  Transmission Date: 20130627
  Serious: Yes (Hospitalization)
  Sender: FDA-Public Use
  Company Number: FR-JNJFOC-20121103784

PATIENT
  Age: 61 Year
  Sex: Male

DRUGS (12)
  1. CONTRAMAL [Suspect]
     Indication: PAIN
     Route: 048
     Dates: start: 20120905, end: 20120910
  2. LEVOFLOXACIN [Suspect]
     Indication: OSTEITIS
     Route: 048
     Dates: start: 20120905, end: 20120914
  3. PARACETAMOL [Suspect]
     Indication: PAIN
     Route: 048
     Dates: start: 20120905, end: 20120906
  4. PARACETAMOL [Suspect]
     Indication: PAIN
     Route: 048
     Dates: start: 20120913, end: 20120918
  5. CONTRAMAL [Suspect]
     Indication: PAIN
     Route: 042
     Dates: start: 20120911, end: 20120913
  6. PERFALGAN [Suspect]
     Indication: PAIN
     Route: 042
     Dates: start: 20120907, end: 20120912
  7. FLAGYL [Concomitant]
     Indication: PRODUCT USED FOR UNKNOWN INDICATION
     Route: 048
     Dates: start: 20120912, end: 20120917
  8. FLAGYL [Concomitant]
     Indication: PRODUCT USED FOR UNKNOWN INDICATION
     Route: 048
     Dates: start: 20120926, end: 20121002
  9. TERCIAN [Concomitant]
     Indication: DELIRIUM
     Route: 048
     Dates: start: 20120821, end: 20120925
  10. CLAFORAN [Concomitant]
     Indication: OSTEITIS
     Route: 042
     Dates: start: 20120820, end: 20120905
  11. CLAFORAN [Concomitant]
     Indication: OSTEITIS
     Route: 042
     Dates: start: 20120906, end: 20120921
  12. AUGMENTIN [Concomitant]
     Indication: ESCHAR
     Route: 042
     Dates: start: 20120818, end: 20120820

REACTIONS (1)
  - Hepatic enzyme increased [Recovering/Resolving]
